FAERS Safety Report 20672027 (Version 1)
Quarter: 2022Q2

REPORT INFORMATION
  Report Type: Spontaneous
  Country: FR (occurrence: FR)
  Receive Date: 20220405
  Receipt Date: 20220405
  Transmission Date: 20220720
  Serious: Yes (Life-Threatening)
  Sender: FDA-Public Use
  Company Number: FR-AFSSAPS-PO20220775

PATIENT
  Age: 30 Year
  Sex: Male
  Weight: 79 kg

DRUGS (8)
  1. SERTRALINE [Suspect]
     Active Substance: SERTRALINE HYDROCHLORIDE
     Indication: Poisoning deliberate
     Dosage: UNK
     Route: 048
     Dates: start: 20220216, end: 20220216
  2. ACETAMINOPHEN [Suspect]
     Active Substance: ACETAMINOPHEN
     Indication: Poisoning deliberate
     Dosage: UNK
     Route: 048
     Dates: start: 20220216, end: 20220216
  3. CYAMEMAZINE [Suspect]
     Active Substance: CYAMEMAZINE
     Indication: Poisoning deliberate
     Dosage: UNK
     Route: 048
     Dates: start: 20220216, end: 20220216
  4. OXAZEPAM [Suspect]
     Active Substance: OXAZEPAM
     Indication: Poisoning deliberate
     Dosage: UNK
     Route: 048
     Dates: start: 20220216, end: 20220216
  5. ARIPIPRAZOLE [Suspect]
     Active Substance: ARIPIPRAZOLE
     Indication: Poisoning deliberate
     Dosage: UNK
     Route: 048
     Dates: start: 20220216, end: 20220216
  6. LOXAPINE [Suspect]
     Active Substance: LOXAPINE
     Indication: Poisoning deliberate
     Dosage: UNK
     Route: 048
     Dates: start: 20220216, end: 20220216
  7. BACLOFEN [Suspect]
     Active Substance: BACLOFEN
     Indication: Poisoning deliberate
     Dosage: UNK
     Route: 048
     Dates: start: 20220216, end: 20220216
  8. CODEINE [Suspect]
     Active Substance: CODEINE
     Indication: Poisoning deliberate
     Dosage: UNK
     Route: 048
     Dates: start: 20220216, end: 20220216

REACTIONS (1)
  - Coma [Recovered/Resolved]

NARRATIVE: CASE EVENT DATE: 20220216
